FAERS Safety Report 10015853 (Version 1)
Quarter: 2014Q1

REPORT INFORMATION
  Report Type: Spontaneous
  Country: DE (occurrence: DE)
  Receive Date: 20140317
  Receipt Date: 20140317
  Transmission Date: 20141002
  Serious: Yes (Death, Hospitalization, Other)
  Sender: FDA-Public Use
  Company Number: DE-BRISTOL-MYERS SQUIBB COMPANY-20494183

PATIENT
  Age: 74 Year
  Sex: Female

DRUGS (16)
  1. CETUXIMAB [Suspect]
     Indication: COLORECTAL CANCER
     Route: 042
     Dates: start: 20131011, end: 20131206
  2. 5-FLUOROURACIL [Suspect]
     Indication: COLORECTAL CANCER
     Dosage: RECENT DOSE 700MG-30AUG13?1000MG-UNK DT?19JUL13-700MG-27TIMES
     Route: 042
     Dates: start: 20130719, end: 20140122
  3. OXALIPLATIN [Suspect]
     Indication: COLORECTAL CANCER
     Dosage: 30DEC13-21JAN14-22D-130MG?19JUL13-STOP-150MG-3 TIMES
     Route: 042
     Dates: start: 20130719, end: 20130920
  4. PANITUMUMAB [Suspect]
     Indication: COLORECTAL CANCER
     Dosage: 1DF=300-350MG
     Route: 042
     Dates: start: 20131230, end: 20140121
  5. AVASTIN [Suspect]
     Indication: COLORECTAL CANCER
     Dosage: RECENT DOSE 30AUG13-275MG-5 TIMES
     Route: 042
     Dates: start: 20130719, end: 20130920
  6. IRINOTECAN [Suspect]
     Indication: COLORECTAL CANCER
     Dosage: 1DF=250-300MG
     Route: 042
     Dates: start: 20131011, end: 20131129
  7. FOLINIC ACID [Suspect]
     Indication: COLORECTAL CANCER
     Dosage: RECENT DOSE 30AUG13-300MG-27TIMES?19JUL13-STOP
     Route: 042
     Dates: start: 20130719, end: 20140122
  8. MORPHINE SULFATE [Concomitant]
     Dosage: 25-28JAN14-24MG
     Route: 048
     Dates: start: 20140125
  9. L-THYROXINE [Concomitant]
     Indication: HYPOTHYROIDISM
     Route: 048
     Dates: start: 20140125
  10. IBUPROFEN [Concomitant]
     Indication: PAIN
     Route: 048
  11. METOCLOPRAMIDE [Concomitant]
     Indication: NAUSEA
     Route: 048
  12. ALIZAPRIDE [Concomitant]
     Indication: NAUSEA
     Route: 048
  13. PANTOPRAZOLE [Concomitant]
     Indication: PROPHYLAXIS
     Route: 048
  14. SODIUM PICOSULFATE [Concomitant]
     Route: 048
     Dates: end: 20140125
  15. SPIRONOLACTONE [Concomitant]
     Route: 048
     Dates: end: 20140125
  16. JONOSTERIL [Concomitant]
     Dates: start: 20140125, end: 20140128

REACTIONS (7)
  - Hepatic lesion [Fatal]
  - Coma [Unknown]
  - Epilepsy [Unknown]
  - Renal disorder [Recovering/Resolving]
  - Urinary tract disorder [Recovering/Resolving]
  - Blood creatinine increased [Recovering/Resolving]
  - Diarrhoea [Recovering/Resolving]
